FAERS Safety Report 18961362 (Version 2)
Quarter: 2021Q1

REPORT INFORMATION
  Report Type: Spontaneous
  Country: CA (occurrence: CA)
  Receive Date: 20210303
  Receipt Date: 20210303
  Transmission Date: 20210420
  Serious: Yes (Other)
  Sender: FDA-Public Use
  Company Number: CA-JNJFOC-20210247553

PATIENT
  Age: 53 Year
  Sex: Female

DRUGS (4)
  1. CIPRO [Concomitant]
     Active Substance: CIPROFLOXACIN HYDROCHLORIDE
  2. FLAGYL [Concomitant]
     Active Substance: METRONIDAZOLE\METRONIDAZOLE HYDROCHLORIDE
     Route: 065
  3. REMICADE [Suspect]
     Active Substance: INFLIXIMAB
     Indication: CROHN^S DISEASE
     Route: 042
  4. PREDNISONE. [Concomitant]
     Active Substance: PREDNISONE

REACTIONS (12)
  - Anal fissure [Unknown]
  - Herpes zoster [Unknown]
  - Hypotension [Unknown]
  - Rash erythematous [Unknown]
  - Stevens-Johnson syndrome [Unknown]
  - Oropharyngeal pain [Unknown]
  - Eye oedema [Unknown]
  - Abdominal pain [Unknown]
  - Blister [Unknown]
  - Condition aggravated [Unknown]
  - Rash [Unknown]
  - Dysphagia [Unknown]
